FAERS Safety Report 5249213-X (Version None)
Quarter: 2007Q1

REPORT INFORMATION
  Report Type: 
  Country: None (occurrence: None)
  Receive Date: 20070228
  Receipt Date: 20070220
  Transmission Date: 20070707
  Serious: Yes (Hospitalization)
  Sender: FDA-Public Use
  Company Number: JP-ROCHE-476434

PATIENT
  Age: 62 Year
  Sex: Male

DRUGS (9)
  1. TICLOPIDINE HCL [Suspect]
     Indication: ANGINA PECTORIS
     Dosage: OTHER INDICATIONS: STENT PLACEMENT AND ANGINA PECTORIS
     Route: 048
     Dates: start: 20060913, end: 20061025
  2. ASPIRIN [Concomitant]
     Route: 048
  3. SIGMART [Concomitant]
     Route: 048
  4. ITOROL [Concomitant]
     Route: 048
  5. LOCHOL [Concomitant]
     Route: 048
  6. LOXONIN [Concomitant]
     Route: 048
  7. GASTER D [Concomitant]
     Route: 048
  8. MUCOSTA [Concomitant]
     Route: 048
  9. ALANETORIN [Concomitant]
     Route: 048
     Dates: start: 20060914, end: 20061025

REACTIONS (3)
  - CYTOLYTIC HEPATITIS [None]
  - HEPATITIS CHOLESTATIC [None]
  - HYPERTHYROIDISM [None]
